FAERS Safety Report 7931145-7 (Version None)
Quarter: 2011Q4

REPORT INFORMATION
  Report Type: 
  Country: None (occurrence: None)
  Receive Date: 20111121
  Receipt Date: 20111115
  Transmission Date: 20120403
  Serious: Yes (Hospitalization, Disabling)
  Sender: FDA-Public Use
  Company Number: US-MERCK-1107USA03588

PATIENT
  Age: 51 Year
  Sex: Female

DRUGS (4)
  1. BONIVA [Suspect]
     Indication: OSTEOPOROSIS
     Route: 065
     Dates: start: 20060201, end: 20091201
  2. ACTONEL [Suspect]
     Indication: OSTEOPOROSIS
     Route: 065
     Dates: start: 20020701, end: 20030701
  3. EVISTA [Concomitant]
     Indication: OSTEOPOROSIS
     Route: 065
  4. FOSAMAX [Suspect]
     Indication: OSTEOPOROSIS
     Route: 048
     Dates: start: 20030701, end: 20060201

REACTIONS (14)
  - HOT FLUSH [None]
  - OSTEONECROSIS OF JAW [None]
  - FOOT FRACTURE [None]
  - NEPHROLITHIASIS [None]
  - SLEEP DISORDER [None]
  - IMPAIRED HEALING [None]
  - ORAL TORUS [None]
  - ACNE [None]
  - HYPERTENSION [None]
  - STOMATITIS [None]
  - ADVERSE EVENT [None]
  - HAND FRACTURE [None]
  - ORAL DISORDER [None]
  - MOUTH ULCERATION [None]
